FAERS Safety Report 9627087 (Version 3)
Quarter: 2013Q4

REPORT INFORMATION
  Report Type: Spontaneous
  Country: FR (occurrence: FR)
  Receive Date: 20131016
  Receipt Date: 20131031
  Transmission Date: 20140711
  Serious: Yes (Death)
  Sender: FDA-Public Use
  Company Number: FR-TEVA-437107ISR

PATIENT
  Age: 57 Year
  Sex: Male

DRUGS (5)
  1. FUROSEMIDE TEVA 40 MG [Suspect]
     Indication: CARDIAC FAILURE
     Dosage: .5 TABLET DAILY;
     Dates: start: 201212, end: 20130531
  2. KARDEGIC 160 MG [Concomitant]
  3. BISOCE 10 MG [Concomitant]
  4. CRESTOR 5 MG [Concomitant]
  5. KALEORID [Concomitant]

REACTIONS (7)
  - Completed suicide [Fatal]
  - Malaise [Not Recovered/Not Resolved]
  - Somnolence [Unknown]
  - Morose [Unknown]
  - Negative thoughts [Unknown]
  - Swelling face [Unknown]
  - Local swelling [Unknown]
